FAERS Safety Report 8192828-X (Version None)
Quarter: 2012Q1

REPORT INFORMATION
  Report Type: 
  Country: None (occurrence: None)
  Receive Date: 20120308
  Receipt Date: 20120307
  Transmission Date: 20120608
  Serious: No
  Sender: FDA-Public Use
  Company Number: US-PFIZER INC-2012061225

PATIENT
  Sex: Female
  Weight: 61.224 kg

DRUGS (4)
  1. VENLAFAXINE [Suspect]
     Indication: CRYING
  2. ZOLOFT [Suspect]
     Indication: DEPRESSION
     Dosage: 100 MG, DAILY
     Dates: end: 20120101
  3. ZOLOFT [Suspect]
     Indication: CRYING
  4. VENLAFAXINE [Suspect]
     Indication: DEPRESSION
     Dosage: 75 MG, DAILY
     Dates: start: 20120101, end: 20120101

REACTIONS (1)
  - DRUG INEFFECTIVE [None]
